FAERS Safety Report 5255117-9 (Version None)
Quarter: 2007Q1

REPORT INFORMATION
  Report Type: 
  Country: None (occurrence: None)
  Receive Date: 20070228
  Receipt Date: 20070213
  Transmission Date: 20070707
  Serious: Yes (Hospitalization)
  Sender: FDA-Public Use
  Company Number: 8022026

PATIENT
  Age: 39 Year
  Sex: Female
  Weight: 58 kg

DRUGS (4)
  1. KEPPRA [Suspect]
     Indication: EPILEPSY
     Dosage: 250 MG 2/D PO
     Route: 048
     Dates: start: 20040622, end: 20040822
  2. KEPPRA [Suspect]
     Indication: EPILEPSY
     Dosage: 250 MG
  3. NEURONTIN [Concomitant]
  4. CARBAMAZEPINE [Concomitant]

REACTIONS (6)
  - AGITATION [None]
  - CONVULSION [None]
  - DELUSIONAL DISORDER, PERSECUTORY TYPE [None]
  - IRRITABILITY [None]
  - PSYCHOTIC DISORDER [None]
  - WEIGHT DECREASED [None]
